FAERS Safety Report 21232989 (Version 3)
Quarter: 2024Q3

REPORT INFORMATION
  Report Type: Report from Study
  Country: JP (occurrence: JP)
  Receive Date: 20220819
  Receipt Date: 20240909
  Transmission Date: 20241017
  Serious: Yes (Other)
  Sender: VIIV
  Company Number: JP-VIIV HEALTHCARE LIMITED-JP2020JPN184891

PATIENT

DRUGS (2)
  1. DOLUTEGRAVIR [Suspect]
     Active Substance: DOLUTEGRAVIR
     Indication: HIV infection
     Dosage: 1 DF, 1D
     Route: 048
     Dates: start: 20180813
  2. DESCOVY [Suspect]
     Active Substance: EMTRICITABINE\TENOFOVIR ALAFENAMIDE FUMARATE
     Indication: HIV infection
     Dosage: 1 DF, 1D
     Dates: start: 20180813

REACTIONS (9)
  - Seasonal allergy [Recovering/Resolving]
  - Seasonal allergy [Recovering/Resolving]
  - Syphilis [Recovering/Resolving]
  - Syphilis [Recovering/Resolving]
  - Seasonal allergy [Recovering/Resolving]
  - Seasonal allergy [Recovering/Resolving]
  - Seasonal allergy [Recovering/Resolving]
  - Sinusitis [Not Recovered/Not Resolved]
  - Red blood cell abnormality [Not Recovered/Not Resolved]

NARRATIVE: CASE EVENT DATE: 20200108
